FAERS Safety Report 7472514-1 (Version None)
Quarter: 2011Q1

REPORT INFORMATION
  Report Type: 
  Country: None (occurrence: None)
  Receive Date: 20110302
  Receipt Date: 20101130
  Transmission Date: 20110831
  Serious: Yes (Other)
  Sender: FDA-Public Use
  Company Number: 163-21880-10101983

PATIENT
  Age: 63 Year
  Sex: Male
  Weight: 97.0698 kg

DRUGS (12)
  1. REVLIMID [Suspect]
     Indication: MULTIPLE MYELOMA
     Dosage: 25 MG, 1 IN 1 D, PO
     Dates: start: 20100903, end: 20100907
  2. ATENOLOL [Concomitant]
  3. PHENERGAN HCL [Concomitant]
  4. DEXAMETHASONE [Concomitant]
  5. FUROSEMIDE [Concomitant]
  6. LASIX [Concomitant]
  7. ALLOPURINOL [Concomitant]
  8. LEVAQUIN [Concomitant]
  9. MEPHYTON (PHYTOMENADIONE) [Concomitant]
  10. FLUTICASONE PROPIONATE [Concomitant]
  11. CYTOXAN [Concomitant]
  12. VELCADE [Concomitant]

REACTIONS (3)
  - ATRIAL FIBRILLATION [None]
  - RASH MACULO-PAPULAR [None]
  - PSYCHOMOTOR HYPERACTIVITY [None]
